FAERS Safety Report 16718987 (Version 3)
Quarter: 2020Q1

REPORT INFORMATION
  Report Type: Report from Study
  Country: US (occurrence: US)
  Receive Date: 20190820
  Receipt Date: 20200206
  Transmission Date: 20200409
  Serious: No
  Sender: FDA-Public Use
  Company Number: PHEH2019US034293

PATIENT
  Age: 60 Year
  Sex: Male

DRUGS (2)
  1. COSENTYX [Suspect]
     Active Substance: SECUKINUMAB
     Dosage: UNK, QW (SECOND)
     Route: 065
     Dates: start: 20190807
  2. COSENTYX [Suspect]
     Active Substance: SECUKINUMAB
     Indication: PSORIATIC ARTHROPATHY
     Dosage: QW FOR 5 WEEKS, THEN Q4W
     Route: 058
     Dates: start: 20190731

REACTIONS (4)
  - Rash [Unknown]
  - Macule [Unknown]
  - Acne [Unknown]
  - Drug ineffective [Unknown]

NARRATIVE: CASE EVENT DATE: 20190807
